FAERS Safety Report 4982233-9 (Version None)
Quarter: 2006Q2

REPORT INFORMATION
  Report Type: 
  Country: None (occurrence: None)
  Receive Date: 20060419
  Receipt Date: 20060404
  Transmission Date: 20061013
  Serious: Yes (Other)
  Sender: FDA-Public Use
  Company Number: 2006BH007387

PATIENT
  Age: 27 Year
  Sex: Female

DRUGS (1)
  1. LACTATED RINGERS INJECTION IN PLASTIC CONTAINER [Suspect]
     Dosage: 800 ML ONCE IV
     Route: 042

REACTIONS (4)
  - DRUG EXPOSURE DURING PREGNANCY [None]
  - INFUSION RELATED REACTION [None]
  - INFUSION SITE PRURITUS [None]
  - INFUSION SITE URTICARIA [None]
